FAERS Safety Report 6632357-5 (Version None)
Quarter: 2010Q1

REPORT INFORMATION
  Report Type: 
  Country: None (occurrence: None)
  Receive Date: 20100312
  Receipt Date: 20100301
  Transmission Date: 20100710
  Serious: Yes (Hospitalization, Other)
  Sender: FDA-Public Use
  Company Number: DE-MPIJNJ-2010-01121

PATIENT

DRUGS (6)
  1. VELCADE [Suspect]
     Indication: MULTIPLE MYELOMA
     Dosage: 1.3 MG/M2, UNK
  2. VELCADE [Suspect]
     Dosage: 2.3 MG, UNK
     Route: 042
     Dates: start: 20100120, end: 20100130
  3. CYCLOPHOSPHAMIDE [Concomitant]
     Indication: MULTIPLE MYELOMA
     Dosage: 900 MG/M2, UNK
  4. CYCLOPHOSPHAMIDE [Concomitant]
     Dosage: 1575 MG, UNK
     Route: 042
     Dates: start: 20100120
  5. DEXAMETHASONE [Concomitant]
     Indication: MULTIPLE MYELOMA
     Dosage: 40 MG, UNK
     Route: 048
  6. UROMITEXAN [Concomitant]

REACTIONS (4)
  - ASPARTATE AMINOTRANSFERASE INCREASED [None]
  - GAMMA-GLUTAMYLTRANSFERASE INCREASED [None]
  - PNEUMONIA FUNGAL [None]
  - TUMOUR LYSIS SYNDROME [None]
